FAERS Safety Report 8986721 (Version 2)
Quarter: 2013Q1

REPORT INFORMATION
  Report Type: Spontaneous
  Country: US (occurrence: None)
  Receive Date: 20121217
  Receipt Date: 20130220
  Transmission Date: 20140127
  Serious: Yes (Hospitalization)
  Sender: FDA-Public Use
  Company Number: TPA2012A09719

PATIENT
  Age: 5 Decade
  Sex: Female

DRUGS (1)
  1. DEXILANT [Suspect]
     Route: 048

REACTIONS (1)
  - Rash [None]
